FAERS Safety Report 13411973 (Version 3)
Quarter: 2018Q3

REPORT INFORMATION
  Report Type: Spontaneous
  Country: BE (occurrence: BE)
  Receive Date: 20170406
  Receipt Date: 20180827
  Transmission Date: 20181010
  Serious: Yes (Death, Life-Threatening, Hospitalization, Disabling, Other)
  Sender: FDA-Public Use
  Company Number: PHHY2017BE048024

PATIENT
  Age: 48 Year
  Sex: Male
  Weight: 172 kg

DRUGS (1)
  1. COSENTYX [Suspect]
     Active Substance: SECUKINUMAB
     Indication: PSORIASIS
     Dosage: 150 MG, QMO
     Route: 058
     Dates: start: 20160409, end: 20170323

REACTIONS (23)
  - Pain in extremity [Unknown]
  - Haematocrit increased [Unknown]
  - Total cholesterol/HDL ratio decreased [Unknown]
  - B-cell lymphoma [Fatal]
  - Hepatic failure [Fatal]
  - Gamma-glutamyltransferase increased [Fatal]
  - Alpha 1 globulin increased [Fatal]
  - Blood creatine phosphokinase increased [Unknown]
  - White blood cell count increased [Unknown]
  - Prothrombin time prolonged [Unknown]
  - Marrow hyperplasia [Fatal]
  - Lymphocyte count decreased [Fatal]
  - Blood albumin decreased [Fatal]
  - Renal failure [Fatal]
  - Vitamin B12 decreased [Unknown]
  - Red blood cell sedimentation rate increased [Unknown]
  - International normalised ratio decreased [Unknown]
  - C-reactive protein increased [Fatal]
  - Bone development abnormal [Unknown]
  - Blood bicarbonate decreased [Unknown]
  - Blood lactate dehydrogenase increased [Fatal]
  - Beta globulin increased [Fatal]
  - Mean cell volume increased [Unknown]

NARRATIVE: CASE EVENT DATE: 20161203
